FAERS Safety Report 17632967 (Version 3)
Quarter: 2020Q3

REPORT INFORMATION
  Report Type: Spontaneous
  Country: US (occurrence: US)
  Receive Date: 20200406
  Receipt Date: 20200729
  Transmission Date: 20201102
  Serious: No
  Sender: FDA-Public Use
  Company Number: US-SA-2020SA084472

PATIENT

DRUGS (3)
  1. DUPIXENT [Suspect]
     Active Substance: DUPILUMAB
     Indication: ECZEMA
     Dosage: 300 MG, QOW
     Route: 058
     Dates: start: 2020
  2. DOXYCYCLINE [DOXYCYCLINE HYDROCHLORIDE] [Concomitant]
  3. DUPIXENT [Suspect]
     Active Substance: DUPILUMAB
     Indication: DERMATITIS ATOPIC
     Dosage: 300 MG, QOW
     Route: 058
     Dates: start: 20200227, end: 2020

REACTIONS (5)
  - Skin infection [Unknown]
  - Back pain [Unknown]
  - Skin exfoliation [Unknown]
  - Dry skin [Unknown]
  - Neck pain [Unknown]

NARRATIVE: CASE EVENT DATE: 2020
